FAERS Safety Report 23366636 (Version 1)
Quarter: 2024Q1

REPORT INFORMATION
  Report Type: Spontaneous
  Country: US (occurrence: None)
  Receive Date: 20240104
  Receipt Date: 20240104
  Transmission Date: 20240410
  Serious: Yes (Death)
  Sender: FDA-Public Use
  Company Number: None

PATIENT
  Age: 40 Year
  Sex: Female
  Weight: 126.2 kg

DRUGS (4)
  1. CEFAZOLIN [Suspect]
     Active Substance: CEFAZOLIN
     Indication: Prophylaxis
     Dosage: 3 G GRAM(S) ONE TIME INTRAVENOUS?
     Route: 042
     Dates: start: 20231113, end: 20231113
  2. bupivacaine 0.75% PF IT [Concomitant]
     Dates: start: 20231113, end: 20231113
  3. astramorph 0.15 mg IT [Concomitant]
     Dates: start: 20231113, end: 20231113
  4. ondansetron 4 mg IV [Concomitant]
     Dates: start: 20231113, end: 20231113

REACTIONS (3)
  - Brain injury [None]
  - Cardio-respiratory arrest [None]
  - Anaphylactic reaction [None]

NARRATIVE: CASE EVENT DATE: 20231113
